FAERS Safety Report 23128678 (Version 3)
Quarter: 2023Q4

REPORT INFORMATION
  Report Type: Report from Study
  Country: US (occurrence: US)
  Receive Date: 20231031
  Receipt Date: 20231122
  Transmission Date: 20240110
  Serious: Yes (Hospitalization, Disabling, Other)
  Sender: FDA-Public Use
  Company Number: US-ABBVIE-5450704

PATIENT
  Sex: Female

DRUGS (1)
  1. IMBRUVICA [Suspect]
     Active Substance: IBRUTINIB
     Indication: Waldenstrom^s macroglobulinaemia
     Route: 048
     Dates: start: 202310

REACTIONS (28)
  - Walking aid user [Unknown]
  - Fall [Unknown]
  - Diarrhoea [Unknown]
  - Stomatitis [Unknown]
  - Intervertebral disc protrusion [Unknown]
  - Muscle spasms [Unknown]
  - Lung neoplasm malignant [Unknown]
  - Nausea [Unknown]
  - Blood iron decreased [Unknown]
  - Herpes zoster [Unknown]
  - Musculoskeletal disorder [Unknown]
  - Pain [Unknown]
  - Skin cancer [Unknown]
  - Eye disorder [Unknown]
  - Visual impairment [Unknown]
  - Tinnitus [Unknown]
  - Heart rate increased [Unknown]
  - Rash [Unknown]
  - Drug withdrawal syndrome [Unknown]
  - Cough [Unknown]
  - Monoclonal immunoglobulin present [Unknown]
  - Rash macular [Unknown]
  - Therapeutic product effect decreased [Recovered/Resolved]
  - Abdominal pain upper [Unknown]
  - Headache [Unknown]
  - Photophobia [Unknown]
  - Unevaluable event [Unknown]
  - Neuralgia [Unknown]

NARRATIVE: CASE EVENT DATE: 20230101
